FAERS Safety Report 4276792-1 (Version None)
Quarter: 2004Q1

REPORT INFORMATION
  Report Type: 
  Country: None (occurrence: None)
  Receive Date: 20040120
  Receipt Date: 20030905
  Transmission Date: 20041129
  Serious: Yes (Hospitalization, Other)
  Sender: FDA-Public Use
  Company Number: 2003174024KR

PATIENT
  Age: 43 Year
  Sex: Male
  Weight: 70 kg

DRUGS (4)
  1. DOXORUBICIN HCL [Suspect]
     Indication: T-CELL LYMPHOMA
     Dosage: 80 MG, CYCLIC, DAY 1, IV
     Route: 042
     Dates: end: 19991201
  2. CYCLOPHOSPHAMIDE [Suspect]
     Indication: T-CELL LYMPHOMA
     Dosage: 1300 MG, CYCLIC, DAY 1, IV
     Route: 042
     Dates: end: 19991201
  3. DELTA-CORTEF(PREDNISOLONE) [Suspect]
     Indication: T-CELL LYMPHOMA
     Dosage: 100 MG, CYCLIC, DAY 1 TO 5, ORAL
     Route: 048
     Dates: end: 19091201
  4. VINCRISTINE [Concomitant]

REACTIONS (6)
  - ALANINE AMINOTRANSFERASE INCREASED [None]
  - ANGIOLYMPHOID HYPERPLASIA WITH EOSINOPHILIA [None]
  - ASPARTATE AMINOTRANSFERASE INCREASED [None]
  - BETA 2 MICROGLOBULIN ABNORMAL [None]
  - BLOOD LACTATE DEHYDROGENASE INCREASED [None]
  - PLATELET COUNT DECREASED [None]
